FAERS Safety Report 5322133-8 (Version None)
Quarter: 2007Q2

REPORT INFORMATION
  Report Type: 
  Country: None (occurrence: None)
  Receive Date: 20070222
  Receipt Date: 20070130
  Transmission Date: 20071010
  Serious: Yes (Other)
  Sender: FDA-Public Use
  Company Number: 2006139359

PATIENT
  Age: 48 Year
  Sex: Female
  Weight: 81.6 kg

DRUGS (10)
  1. EXUBERA [Suspect]
     Indication: DIABETES MELLITUS
     Dosage: (4 MG, THREE TIMES DAILY WITH MEALS), INHALATION
     Route: 055
     Dates: start: 20061110
  2. EXUBERA [Suspect]
  3. EXUBERA [Concomitant]
  4. ZOLOFT [Concomitant]
  5. AVANDIA [Concomitant]
  6. RISPERDAL [Concomitant]
  7. EFFEXOR XR [Concomitant]
  8. BYETTA [Concomitant]
  9. LOTREL [Concomitant]
  10. CLARITIN [Concomitant]

REACTIONS (1)
  - BLOOD GLUCOSE INCREASED [None]
